FAERS Safety Report 7541796-X (Version None)
Quarter: 2011Q2

REPORT INFORMATION
  Report Type: 
  Country: None (occurrence: None)
  Receive Date: 20110524
  Receipt Date: 20110321
  Transmission Date: 20111010
  Serious: No
  Sender: FDA-Public Use
  Company Number: 029662

PATIENT
  Sex: Male
  Weight: 71.7 kg

DRUGS (4)
  1. CARAFATE [Concomitant]
  2. SULFASALAZINE [Concomitant]
  3. CIMZIA [Suspect]
     Indication: CROHN'S DISEASE
     Dosage: 400 MG 1X/2 WEEKS SUBCUTANEOUS
     Route: 058
     Dates: start: 20110216, end: 20110101
  4. NEXIUM [Concomitant]

REACTIONS (1)
  - PNEUMONIA [None]
